FAERS Safety Report 7751940-7 (Version None)
Quarter: 2011Q3

REPORT INFORMATION
  Report Type: 
  Country: None (occurrence: None)
  Receive Date: 20110915
  Receipt Date: 20110905
  Transmission Date: 20111222
  Serious: Yes (Other)
  Sender: FDA-Public Use
  Company Number: US-JNJFOC-20110903964

PATIENT
  Age: 21 Year
  Sex: Male

DRUGS (3)
  1. RISPERDAL [Suspect]
     Indication: AUTISM
     Route: 048
     Dates: start: 20110801, end: 20110801
  2. RISPERDAL [Suspect]
     Route: 048
     Dates: start: 20110801
  3. RISPERDAL [Suspect]
     Route: 048
     Dates: start: 20050101, end: 20110801

REACTIONS (4)
  - SPEECH DISORDER [None]
  - MOANING [None]
  - MOOD ALTERED [None]
  - AGGRESSION [None]
